FAERS Safety Report 5771035-1 (Version None)
Quarter: 2008Q2

REPORT INFORMATION
  Report Type: 
  Country: None (occurrence: None)
  Receive Date: 20080613
  Receipt Date: 20080527
  Transmission Date: 20081010
  Serious: No
  Sender: FDA-Public Use
  Company Number: US-ABBOTT-08P-163-0453516-00

PATIENT
  Sex: Female
  Weight: 68.1 kg

DRUGS (9)
  1. HUMIRA [Suspect]
     Indication: BEHCET'S SYNDROME
     Route: 058
     Dates: start: 20080523
  2. MELOXICAM [Concomitant]
     Indication: PAIN
     Route: 048
     Dates: start: 20080201
  3. MELOXICAM [Concomitant]
     Indication: BEHCET'S SYNDROME
  4. COLCHICINE [Concomitant]
     Indication: BEHCET'S SYNDROME
     Dosage: 1 TAB IN AM AND 2 TABS AT BEDTIME
     Route: 048
     Dates: start: 20080201
  5. TOPIRAMATE [Concomitant]
     Indication: MIGRAINE
     Route: 048
     Dates: start: 20080522
  6. SERTRALINE [Concomitant]
     Indication: FIBROMYALGIA
     Route: 048
     Dates: start: 20080417
  7. SERTRALINE [Concomitant]
     Indication: INSOMNIA
  8. SERTRALINE [Concomitant]
     Indication: ANXIETY
  9. ACETAMINOPHEN [Concomitant]
     Indication: BREAKTHROUGH PAIN
     Dosage: TWO 200MG TABS ONCE DAILY
     Route: 048
     Dates: start: 20071001

REACTIONS (1)
  - ACCIDENTAL EXPOSURE [None]
